FAERS Safety Report 6269099-4 (Version None)
Quarter: 2009Q3

REPORT INFORMATION
  Report Type: 
  Country: None (occurrence: None)
  Receive Date: 20090714
  Receipt Date: 20090714
  Transmission Date: 20100115
  Serious: Yes (Other)
  Sender: FDA-Public Use
  Company Number: None

PATIENT
  Age: 10 Year
  Sex: Male
  Weight: 45.3597 kg

DRUGS (1)
  1. RISPERIDONE [Suspect]
     Indication: ASPERGER'S DISORDER
     Dosage: 0.5MG DAILY PO
     Route: 048
     Dates: start: 20051229, end: 20090713

REACTIONS (5)
  - AGITATION [None]
  - BIPOLAR DISORDER [None]
  - CRYING [None]
  - EYE ROLLING [None]
  - MOOD SWINGS [None]
